FAERS Safety Report 9109504 (Version 2)
Quarter: 2013Q1

REPORT INFORMATION
  Report Type: Report from Study
  Country: GB (occurrence: GB)
  Receive Date: 20130222
  Receipt Date: 20130328
  Transmission Date: 20140127
  Serious: Yes (Death)
  Sender: FDA-Public Use
  Company Number: GB-PFIZER INC-2013063658

PATIENT
  Age: 75 Year
  Sex: Male
  Weight: 85.1 kg

DRUGS (5)
  1. AXITINIB [Suspect]
     Indication: METASTATIC RENAL CELL CARCINOMA
     Dosage: 5 MG, 2X/DAY
     Route: 048
     Dates: start: 20100305, end: 20130212
  2. TAMSULOSIN [Concomitant]
     Indication: NOCTURIA
     Dosage: UNK
     Route: 048
     Dates: start: 200903
  3. LOPERAMIDE [Concomitant]
     Indication: DIARRHOEA
     Dosage: UNK
     Route: 048
     Dates: start: 20100605
  4. CODEINE [Concomitant]
     Indication: DIARRHOEA
     Dosage: UNK
     Route: 048
     Dates: start: 20110204
  5. OMEPRAZOLE [Concomitant]
     Indication: ANTACID THERAPY
     Dosage: UNK
     Route: 048
     Dates: start: 20130215

REACTIONS (2)
  - Haemorrhage coronary artery [Fatal]
  - Arteriosclerosis coronary artery [Fatal]
